FAERS Safety Report 4627443-5 (Version None)
Quarter: 2005Q1

REPORT INFORMATION
  Report Type: 
  Country: None (occurrence: None)
  Receive Date: 20050331
  Receipt Date: 20050318
  Transmission Date: 20050727
  Serious: Yes (Life-Threatening, Hospitalization)
  Sender: FDA-Public Use
  Company Number: 2005PK00496

PATIENT
  Age: 34 Year
  Sex: Female
  Weight: 47 kg

DRUGS (6)
  1. ENTOCORT [Suspect]
     Indication: GRAFT VERSUS HOST DISEASE
     Dosage: 3 MG DAILY PO
     Route: 048
     Dates: start: 20040401
  2. DECORTIN-H [Suspect]
     Indication: GRAFT VERSUS HOST DISEASE
     Dosage: 7.5 MG DAILY PO
     Route: 048
     Dates: start: 20040401
  3. PROGRAF [Suspect]
     Indication: GRAFT VERSUS HOST DISEASE
     Dosage: 1 MG DAILY PO
     Route: 048
     Dates: start: 20040401
  4. SCH 56592 (POSACONAZOLE) [Concomitant]
  5. TAVOR [Concomitant]
  6. NEUPOGEN [Concomitant]

REACTIONS (5)
  - ARTHRALGIA [None]
  - ARTHRITIS [None]
  - BACTERIAL SEPSIS [None]
  - HYPOTENSION [None]
  - JOINT SWELLING [None]
